FAERS Safety Report 25501905 (Version 2)
Quarter: 2025Q4

REPORT INFORMATION
  Report Type: Spontaneous
  Country: US (occurrence: US)
  Receive Date: 20250702
  Receipt Date: 20251013
  Transmission Date: 20260117
  Serious: Yes (Hospitalization, Other)
  Sender: JOHNSON AND JOHNSON
  Company Number: US-JNJFOC-20250633650

PATIENT
  Age: 70 Year
  Sex: Male
  Weight: 54.43 kg

DRUGS (1)
  1. XARELTO [Suspect]
     Active Substance: RIVAROXABAN
     Indication: Thrombosis
     Route: 048
     Dates: start: 2015

REACTIONS (8)
  - Colon cancer [Unknown]
  - Haematochezia [Unknown]
  - Hospitalisation [Unknown]
  - Dyspepsia [Unknown]
  - Vomiting [Unknown]
  - Fatigue [Unknown]
  - General physical health deterioration [Unknown]
  - Weight decreased [Unknown]

NARRATIVE: CASE EVENT DATE: 20250301
